FAERS Safety Report 23695402 (Version 2)
Quarter: 2024Q2

REPORT INFORMATION
  Report Type: Spontaneous
  Country: JP (occurrence: JP)
  Receive Date: 20240402
  Receipt Date: 20240414
  Transmission Date: 20240715
  Serious: Yes (Hospitalization, Other)
  Sender: FDA-Public Use
  Company Number: JP-ONO-2024JP006824

PATIENT
  Age: 5 Decade
  Sex: Female

DRUGS (3)
  1. YERVOY [Suspect]
     Active Substance: IPILIMUMAB
     Indication: Colon cancer
     Route: 041
  2. OPDIVO [Suspect]
     Active Substance: NIVOLUMAB
     Indication: Colon cancer
     Route: 041
  3. OPDIVO [Suspect]
     Active Substance: NIVOLUMAB
     Route: 041

REACTIONS (12)
  - Splenic infarction [Recovering/Resolving]
  - Renal infarct [Recovering/Resolving]
  - Type 1 diabetes mellitus [Recovering/Resolving]
  - Immune-mediated enterocolitis [Recovering/Resolving]
  - Gastrointestinal wall thickening [Recovering/Resolving]
  - Lymphocytic hypophysitis [Recovering/Resolving]
  - Blood thyroid stimulating hormone decreased [Recovering/Resolving]
  - Blood corticotrophin decreased [Recovering/Resolving]
  - Diarrhoea [Recovering/Resolving]
  - Pruritus [Recovering/Resolving]
  - Immune-mediated hepatic disorder [Recovering/Resolving]
  - Diabetic ketoacidosis [Recovering/Resolving]
